FAERS Safety Report 4807592-9 (Version None)
Quarter: 2005Q4

REPORT INFORMATION
  Report Type: 
  Country: None (occurrence: None)
  Receive Date: 20051024
  Receipt Date: 20050823
  Transmission Date: 20060501
  Serious: Yes (Other)
  Sender: FDA-Public Use
  Company Number: PHNR2005AU01299

PATIENT
  Age: 35 Year
  Sex: Female

DRUGS (5)
  1. LAMOTRIGINE [Concomitant]
  2. VALPROATE SODIUM [Concomitant]
  3. OLANZAPINE [Concomitant]
  4. CLOZARIL [Suspect]
     Indication: PSYCHOTIC DISORDER
     Dosage: 200 MG, QD
     Dates: start: 20050811, end: 20050822
  5. CLONAZEPAM [Concomitant]

REACTIONS (11)
  - C-REACTIVE PROTEIN INCREASED [None]
  - COUGH [None]
  - LETHARGY [None]
  - LYMPHOCYTE COUNT DECREASED [None]
  - MONOCYTE COUNT DECREASED [None]
  - PNEUMONITIS [None]
  - PULMONARY SEPSIS [None]
  - PYREXIA [None]
  - SEPSIS [None]
  - THROMBOCYTOPENIA [None]
  - VIRAL INFECTION [None]
